FAERS Safety Report 10475167 (Version 1)
Quarter: 2014Q3

REPORT INFORMATION
  Report Type: Spontaneous
  Country: None (occurrence: US)
  Receive Date: 20140925
  Receipt Date: 20140925
  Transmission Date: 20150326
  Serious: No
  Sender: FDA-Public Use
  Company Number: US-DRREDDYS-USA/USA/13/0034209

PATIENT
  Age: 66 Year
  Sex: Female
  Weight: 95.79 kg

DRUGS (1)
  1. FINASTERIDE 1 MG [Suspect]
     Active Substance: FINASTERIDE
     Indication: PRODUCT USED FOR UNKNOWN INDICATION
     Route: 048

REACTIONS (3)
  - Discomfort [Not Recovered/Not Resolved]
  - Product quality issue [Unknown]
  - Nightmare [Not Recovered/Not Resolved]
